FAERS Safety Report 22137804 (Version 1)
Quarter: 2023Q1

REPORT INFORMATION
  Report Type: Report from Study
  Country: US (occurrence: US)
  Receive Date: 20230325
  Receipt Date: 20230325
  Transmission Date: 20230418
  Serious: Yes (Hospitalization, Other)
  Sender: FDA-Public Use
  Company Number: US-ABBVIE-4317651

PATIENT
  Age: 65 Year
  Sex: Male

DRUGS (1)
  1. IMBRUVICA [Suspect]
     Active Substance: IBRUTINIB
     Indication: Chronic lymphocytic leukaemia
     Dosage: 2022-12-23 WAS THE EVENT ONSET DATE OF ADVANCED PROSTATE CANCER
     Route: 048
     Dates: start: 202111, end: 20230113

REACTIONS (2)
  - Prostate cancer [Unknown]
  - Prostatic operation [Recovering/Resolving]

NARRATIVE: CASE EVENT DATE: 20230315
